FAERS Safety Report 24583777 (Version 1)
Quarter: 2024Q4

REPORT INFORMATION
  Report Type: Spontaneous
  Country: CN (occurrence: CN)
  Receive Date: 20241106
  Receipt Date: 20241106
  Transmission Date: 20250114
  Serious: Yes (Other)
  Sender: SANOFI AVENTIS
  Company Number: CN-SA-2024SA317427

PATIENT
  Age: 26 Year
  Sex: Female
  Weight: 86 kg

DRUGS (3)
  1. THYMOGLOBULINE [Suspect]
     Active Substance: LAPINE T-LYMPHOCYTE IMMUNE GLOBULIN
     Indication: Adjuvant therapy
     Dosage: 200 MG, QD
     Route: 041
     Dates: start: 20240830, end: 20240901
  2. POTASSIUM CHLORIDE [Concomitant]
     Active Substance: POTASSIUM CHLORIDE
     Indication: Adjuvant therapy
     Dosage: 40 ML, QD
     Route: 041
     Dates: start: 20240830, end: 20240901
  3. CALCIUM GLUCONATE [Concomitant]
     Active Substance: CALCIUM GLUCONATE
     Indication: Adjuvant therapy
     Dosage: 10 ML, QD
     Route: 041
     Dates: start: 20240830, end: 20240901

REACTIONS (6)
  - Asphyxia [Recovering/Resolving]
  - Chest discomfort [Recovered/Resolved]
  - Heart rate decreased [Recovered/Resolved]
  - Rash erythematous [Recovered/Resolved]
  - Dyspnoea [Recovered/Resolved]
  - Blood pressure increased [Recovered/Resolved]

NARRATIVE: CASE EVENT DATE: 20240830
